FAERS Safety Report 5085672-3 (Version None)
Quarter: 2006Q3

REPORT INFORMATION
  Report Type: 
  Country: None (occurrence: None)
  Receive Date: 20060822
  Receipt Date: 20060815
  Transmission Date: 20061208
  Serious: Yes (Life-Threatening)
  Sender: FDA-Public Use
  Company Number: NL-ROCHE-459572

PATIENT
  Age: 47 Year
  Sex: Male
  Weight: 80 kg

DRUGS (2)
  1. ACCUTANE [Suspect]
     Indication: ROSACEA
     Route: 048
     Dates: start: 20060519, end: 20060626
  2. SEROXAT [Concomitant]
     Dosage: FORM REPORTED AS FILMCOATED TAB.
     Route: 048
     Dates: start: 20040615

REACTIONS (2)
  - AGGRESSION [None]
  - SUICIDAL IDEATION [None]
